FAERS Safety Report 5467731-6 (Version None)
Quarter: 2007Q3

REPORT INFORMATION
  Report Type: 
  Country: None (occurrence: None)
  Receive Date: 20070814
  Receipt Date: 20070517
  Transmission Date: 20080115
  Serious: No
  Sender: FDA-Public Use
  Company Number: 200713557US

PATIENT
  Age: 60 Year
  Sex: Female

DRUGS (12)
  1. APIDRA [Suspect]
     Indication: TYPE 2 DIABETES MELLITUS
     Dosage: 10 U WITH MEALS U
     Dates: start: 20070401
  2. APIDRA [Suspect]
     Indication: TYPE 2 DIABETES MELLITUS
  3. OPTICLIK GREY [Suspect]
     Indication: TYPE 2 DIABETES MELLITUS
     Dates: start: 20070501
  4. LANTUS [Suspect]
     Indication: TYPE 2 DIABETES MELLITUS
     Dates: start: 20060101
  5. DILTIAZEM (CARDIZEM /00489701/) [Concomitant]
  6. ISOSORBIDE DINITRATE [Concomitant]
  7. ZOCOR [Concomitant]
  8. CLOPIDOGREL (PLAVIX /01220701/) [Concomitant]
  9. ASPIRIN [Concomitant]
  10. LAMICTAL [Concomitant]
  11. ABILIFY [Concomitant]
  12. TOLTERODINE L-TARTRATE (DETROL LA) [Concomitant]

REACTIONS (3)
  - ACCIDENTAL OVERDOSE [None]
  - BLOOD GLUCOSE INCREASED [None]
  - DRUG INEFFECTIVE [None]
